FAERS Safety Report 17113576 (Version 2)
Quarter: 2019Q4

REPORT INFORMATION
  Report Type: Spontaneous
  Country: JP (occurrence: JP)
  Receive Date: 20191205
  Receipt Date: 20191211
  Transmission Date: 20200122
  Serious: Yes (Other)
  Sender: FDA-Public Use
  Company Number: JP-SUN PHARMACEUTICAL INDUSTRIES LTD-2019RR-229595

PATIENT
  Age: 66 Year
  Sex: Male

DRUGS (3)
  1. OXALIPLATIN. [Suspect]
     Active Substance: OXALIPLATIN
     Dosage: 130 MILLIGRAM, FOR 4 CYCLES, AS SOX CHEMOTHERAPY
  2. OXALIPLATIN. [Suspect]
     Active Substance: OXALIPLATIN
     Indication: GASTRIC CANCER STAGE IV
     Dosage: 170 MILLIGRAM, FOR 3 CYCLES, AS SOX CHEMOTHERAPY
     Route: 065
  3. TS-1 [Suspect]
     Active Substance: GIMERACIL\OTERACIL\TEGAFUR
     Indication: GASTRIC CANCER STAGE IV
     Dosage: AS SOX CHEMOTHERAPY
     Route: 065

REACTIONS (2)
  - Hepatic atrophy [Unknown]
  - Disease progression [Unknown]
